FAERS Safety Report 6371512-9 (Version None)
Quarter: 2009Q3

REPORT INFORMATION
  Report Type: 
  Country: None (occurrence: None)
  Receive Date: 20090923
  Receipt Date: 20080325
  Transmission Date: 20100115
  Serious: No
  Sender: FDA-Public Use
  Company Number: US-ASTRAZENECA-2007UW21667

PATIENT
  Age: 47 Year
  Sex: Female
  Weight: 167.8 kg

DRUGS (14)
  1. SEROQUEL [Suspect]
     Indication: ANXIETY
     Dosage: 100 MG TO 300 MG
     Route: 048
     Dates: start: 20040101, end: 20061101
  2. SEROQUEL [Suspect]
     Indication: DEPRESSION
     Dosage: 100 MG TO 300 MG
     Route: 048
     Dates: start: 20040101, end: 20061101
  3. SEROQUEL [Suspect]
     Indication: INSOMNIA
     Dosage: 100 MG TO 300 MG
     Route: 048
     Dates: start: 20040101, end: 20061101
  4. SEROQUEL [Suspect]
     Dosage: 50-400 MG
     Route: 048
     Dates: start: 20050323
  5. SEROQUEL [Suspect]
     Dosage: 50-400 MG
     Route: 048
     Dates: start: 20050323
  6. SEROQUEL [Suspect]
     Dosage: 50-400 MG
     Route: 048
     Dates: start: 20050323
  7. PROZAC [Concomitant]
     Dosage: 30 MG TO 40 MG
     Route: 065
  8. KLONOPIN [Concomitant]
     Route: 065
  9. TOPAMAX [Concomitant]
     Route: 065
  10. PROVIGIL [Concomitant]
     Dosage: 200 MG TO 300 MG
     Route: 065
  11. STRATTERA [Concomitant]
     Route: 065
  12. LIPITOR [Concomitant]
     Route: 065
  13. LUNESTA [Concomitant]
     Route: 065
  14. ELAVIL [Concomitant]
     Dosage: 25 MG TO 125 MG
     Route: 065

REACTIONS (8)
  - ABNORMAL DREAMS [None]
  - DIABETES MELLITUS [None]
  - DUODENAL ULCER [None]
  - DYSPNOEA EXERTIONAL [None]
  - HYPERCHOLESTEROLAEMIA [None]
  - HYPERGLYCAEMIA [None]
  - MOBILITY DECREASED [None]
  - WEIGHT INCREASED [None]
